FAERS Safety Report 20712489 (Version 2)
Quarter: 2022Q2

REPORT INFORMATION
  Report Type: Spontaneous
  Country: IT (occurrence: IT)
  Receive Date: 20220415
  Receipt Date: 20220502
  Transmission Date: 20220720
  Serious: Yes (Hospitalization, Other)
  Sender: FDA-Public Use
  Company Number: IT-MLMSERVICE-20220330-3465530-1

PATIENT
  Age: 2 Year
  Sex: Male

DRUGS (11)
  1. METHYLPREDNISOLONE [Suspect]
     Active Substance: METHYLPREDNISOLONE
     Indication: Acute graft versus host disease in intestine
     Dosage: 2 MG/KG
  2. PREDNISONE [Suspect]
     Active Substance: PREDNISONE
     Indication: Prophylaxis against graft versus host disease
     Dosage: 1 MG/KG, QD
  3. PREDNISONE [Suspect]
     Active Substance: PREDNISONE
     Dosage: INCREASE IN STEROID THERAPY
  4. FLUDARABINE PHOSPHATE [Suspect]
     Active Substance: FLUDARABINE PHOSPHATE
     Indication: Bone marrow conditioning regimen
     Dosage: 30 MG/M2, QD
  5. ANTI-THYMOCYTE GLOBULIN (RABBIT) NOS [Suspect]
     Active Substance: LAPINE T-LYMPHOCYTE IMMUNE GLOBULIN
     Indication: Bone marrow conditioning regimen
     Dosage: 2.5 MG/KG, QD WAS EMPLOYED FROM DAY ?10 TO DAY ?8
  6. MYCOPHENOLATE MOFETIL [Suspect]
     Active Substance: MYCOPHENOLATE MOFETIL
     Indication: Condition aggravated
     Dosage: UNK
  7. TREOSULFAN [Suspect]
     Active Substance: TREOSULFAN
     Indication: Bone marrow conditioning regimen
     Dosage: 12 G/M2 FROM DAY ?7 TO DAY ?5
  8. RUXOLITINIB [Suspect]
     Active Substance: RUXOLITINIB
     Indication: Acute graft versus host disease in intestine
     Dosage: UNK
  9. BEGELOMAB [Suspect]
     Active Substance: BEGELOMAB
     Indication: Condition aggravated
     Dosage: UNK
  10. USTEKINUMAB [Suspect]
     Active Substance: USTEKINUMAB
     Indication: Condition aggravated
     Dosage: UNK
  11. CYCLOSPORINE [Suspect]
     Active Substance: CYCLOSPORINE
     Indication: Prophylaxis against graft versus host disease
     Dosage: 2 MG/KG, QD
     Route: 042

REACTIONS (10)
  - Bacterial translocation [Recovered/Resolved]
  - Gastrointestinal infection [Recovered/Resolved]
  - Intestinal obstruction [Recovered/Resolved]
  - Diarrhoea haemorrhagic [Recovered/Resolved]
  - Pneumatosis intestinalis [Recovered/Resolved]
  - Abdominal pain [Recovered/Resolved]
  - Abdominal distension [Recovered/Resolved]
  - Pneumomediastinum [Recovered/Resolved]
  - Pneumoretroperitoneum [Recovered/Resolved]
  - Pancreatitis acute [Recovered/Resolved]
